FAERS Safety Report 5680081-8 (Version None)
Quarter: 2008Q1

REPORT INFORMATION
  Report Type: 
  Country: None (occurrence: None)
  Receive Date: 20080326
  Receipt Date: 20071221
  Transmission Date: 20080703
  Serious: No
  Sender: FDA-Public Use
  Company Number: US-BAYER-200716927NA

PATIENT
  Age: 78 Year
  Sex: Female

DRUGS (3)
  1. ULTRAVIST (PHARMACY BULK) [Suspect]
     Indication: COMPUTERISED TOMOGRAM
     Dosage: UNIT DOSE: 100 ML
     Route: 042
  2. BETA BLOCKERS [Concomitant]
  3. READI-CAT [Concomitant]
     Indication: COMPUTERISED TOMOGRAM
     Route: 048

REACTIONS (4)
  - DYSPNOEA [None]
  - FLUSHING [None]
  - SYNCOPE VASOVAGAL [None]
  - URTICARIA [None]
